FAERS Safety Report 10069730 (Version 2)
Quarter: 2014Q2

REPORT INFORMATION
  Report Type: Report from Study
  Country: TH (occurrence: TH)
  Receive Date: 20140410
  Receipt Date: 20140410
  Transmission Date: 20141212
  Serious: Yes (Hospitalization)
  Sender: FDA-Public Use
  Company Number: TH-ROCHE-1349238

PATIENT
  Age: 64 Year
  Sex: Female
  Weight: 38 kg

DRUGS (2)
  1. TRASTUZUMAB EMTANSINE [Suspect]
     Indication: BREAST CANCER
     Route: 042
     Dates: start: 20130617
  2. TRASTUZUMAB EMTANSINE [Suspect]
     Route: 042
     Dates: end: 20140325

REACTIONS (8)
  - Dyspnoea [Unknown]
  - Disease progression [Unknown]
  - Platelet count decreased [Unknown]
  - Herpes zoster [Unknown]
  - Anaemia [Unknown]
  - Aspartate aminotransferase increased [Unknown]
  - Blood alkaline phosphatase increased [Unknown]
  - Alanine aminotransferase increased [Unknown]
